FAERS Safety Report 16095844 (Version 2)
Quarter: 2019Q1

REPORT INFORMATION
  Report Type: Report from Study
  Country: US (occurrence: US)
  Receive Date: 20190320
  Receipt Date: 20190327
  Transmission Date: 20190418
  Serious: Yes (Other)
  Sender: FDA-Public Use
  Company Number: PHEH2019US011256

PATIENT
  Sex: Female

DRUGS (1)
  1. PROMACTA [Suspect]
     Active Substance: ELTROMBOPAG OLAMINE
     Indication: PRODUCT USED FOR UNKNOWN INDICATION
     Dosage: 75 MG (1 TABLET BY MOUTH DAILY), QD
     Route: 048

REACTIONS (3)
  - Platelet count decreased [Unknown]
  - Gastric haemorrhage [Unknown]
  - Abdominal discomfort [Unknown]
